FAERS Safety Report 14447032 (Version 1)
Quarter: 2018Q1

REPORT INFORMATION
  Report Type: Spontaneous
  Country: US (occurrence: US)
  Receive Date: 20180126
  Receipt Date: 20180126
  Transmission Date: 20180509
  Serious: Yes (Hospitalization, Other)
  Sender: FDA-Public Use
  Company Number: US-PFIZER INC-2018033299

PATIENT
  Age: 71 Year
  Sex: Male

DRUGS (3)
  1. SUTENT [Suspect]
     Active Substance: SUNITINIB MALATE
     Dosage: UNK
     Dates: end: 20170529
  2. SUTENT [Suspect]
     Active Substance: SUNITINIB MALATE
     Dosage: UNK, CYCLIC (CYCLE 6 SUTENT ONE WEEK ON AND ONE WEEK OFF)
     Dates: start: 20180103
  3. SUTENT [Suspect]
     Active Substance: SUNITINIB MALATE
     Dosage: UNK
     Dates: end: 201710

REACTIONS (5)
  - Thrombocytopenia [Unknown]
  - Oral discomfort [Unknown]
  - Mucosal inflammation [Unknown]
  - Palmar erythema [Unknown]
  - Pain in extremity [Unknown]
